FAERS Safety Report 9258651 (Version 1)
Quarter: 2013Q1

REPORT INFORMATION
  Report Type: Spontaneous
  Country: US (occurrence: None)
  Receive Date: 20121212
  Receipt Date: 20121212
  Transmission Date: 20140127
  Serious: No
  Sender: FDA-Public Use
  Company Number: 1209USA011129

PATIENT
  Age: 62 Year
  Sex: Female
  Weight: 63.9 kg

DRUGS (3)
  1. VICTRELIS [Suspect]
     Indication: HEPATITIS C
  2. PEGINTRON (PEGINTERFERON ALFA-2B) POWDER FOR INJECTION [Suspect]
     Indication: HEPATITIS C
  3. RIBAVIRIN (RIBAVIRIN) [Suspect]
     Indication: HEPATITIS C

REACTIONS (1)
  - Anaemia [None]
